FAERS Safety Report 6164823-3 (Version None)
Quarter: 2009Q2

REPORT INFORMATION
  Report Type: 
  Country: None (occurrence: None)
  Receive Date: 20090423
  Receipt Date: 20090415
  Transmission Date: 20091009
  Serious: Yes (Other)
  Sender: FDA-Public Use
  Company Number: PHHY2009GB14564

PATIENT
  Sex: Female

DRUGS (4)
  1. CLOZARIL [Suspect]
     Indication: SCHIZOPHRENIA
     Dosage: UNK
     Dates: start: 20080912, end: 20081224
  2. LITHIUM CARBONATE [Concomitant]
     Dosage: 800MG NOCTE
  3. LOFEPRAMINE [Concomitant]
     Dosage: 70MG MANE
  4. STELAZINE [Concomitant]
     Dosage: 5 MG TDS

REACTIONS (5)
  - APPENDICITIS [None]
  - MENTAL DISORDER [None]
  - NEUTROPENIA [None]
  - NEUTROPHIL COUNT INCREASED [None]
  - WHITE BLOOD CELL COUNT INCREASED [None]
